FAERS Safety Report 9531159 (Version 2)
Quarter: 2013Q3

REPORT INFORMATION
  Report Type: Spontaneous
  Country: GB (occurrence: GB)
  Receive Date: 20130918
  Receipt Date: 20130918
  Transmission Date: 20140515
  Serious: Yes (Other)
  Sender: FDA-Public Use
  Company Number: PHFR2013GB001816

PATIENT
  Age: 64 Year
  Sex: Male

DRUGS (9)
  1. CLOZARIL [Suspect]
     Indication: SCHIZOPHRENIA
     Dosage: UNK
     Route: 048
     Dates: start: 20010701
  2. CLOZARIL [Suspect]
     Dosage: 400 MG
     Route: 048
  3. ALLOPURINOL [Concomitant]
     Dosage: 300 MG, UNK
     Route: 048
  4. KWELLS [Concomitant]
     Dosage: 300 UG
     Route: 048
  5. OXYBUTYNIN [Concomitant]
     Dosage: 1 DFTDS
     Route: 048
  6. SIMVASTATIN [Concomitant]
     Dosage: 1 DF/ DAY
     Route: 048
  7. SODIUM VALPROATE [Concomitant]
     Dosage: 500 UKN
     Route: 048
  8. RISPERIDONE [Concomitant]
     Dosage: 1 MG, UNK
     Route: 048
  9. VALSARTAN [Concomitant]
     Dosage: 80 MG ONCE DAY

REACTIONS (6)
  - Pleural effusion [Recovered/Resolved]
  - Haemoglobin decreased [Not Recovered/Not Resolved]
  - Red blood cell count decreased [Unknown]
  - Haematocrit decreased [Unknown]
  - Neutrophil count increased [Recovered/Resolved]
  - Platelet count increased [Recovered/Resolved]
